FAERS Safety Report 8121897-8 (Version None)
Quarter: 2012Q1

REPORT INFORMATION
  Report Type: 
  Country: None (occurrence: None)
  Receive Date: 20120207
  Receipt Date: 20120207
  Transmission Date: 20120608
  Serious: Yes (Hospitalization)
  Sender: FDA-Public Use
  Company Number: None

PATIENT
  Sex: Male
  Weight: 103.9 kg

DRUGS (2)
  1. CYTARABINE [Suspect]
     Dosage: 41220 MG
     Dates: end: 20111222
  2. DAUNORUBICIN HCL [Suspect]
     Dates: end: 20111027

REACTIONS (29)
  - CHOROIDAL EFFUSION [None]
  - CELLULITIS [None]
  - ASTHENIA [None]
  - MYALGIA [None]
  - NEUTROPENIA [None]
  - BLINDNESS UNILATERAL [None]
  - MALAISE [None]
  - JOINT ABSCESS [None]
  - PYREXIA [None]
  - CONJUNCTIVAL HAEMORRHAGE [None]
  - VISUAL FIELD DEFECT [None]
  - VITRITIS [None]
  - EYE ABSCESS [None]
  - LEUKAEMIC INFILTRATION [None]
  - MUSCLE SPASMS [None]
  - CATHETER SITE DISCHARGE [None]
  - PURULENCE [None]
  - EYE PAIN [None]
  - STAPHYLOCOCCAL SEPSIS [None]
  - ARTHRITIS INFECTIVE [None]
  - OCULAR HYPERAEMIA [None]
  - CHILLS [None]
  - PLATELET COUNT DECREASED [None]
  - EXOPHTHALMOS [None]
  - RETINAL EXUDATES [None]
  - RETINAL DETACHMENT [None]
  - MASS [None]
  - DEVICE DEPLOYMENT ISSUE [None]
  - RENAL FAILURE ACUTE [None]
